FAERS Safety Report 17208718 (Version 1)
Quarter: 2019Q4

REPORT INFORMATION
  Report Type: Report from Study
  Country: KR (occurrence: KR)
  Receive Date: 20191227
  Receipt Date: 20191227
  Transmission Date: 20200122
  Serious: Yes (Death)
  Sender: FDA-Public Use
  Company Number: KR-PFIZER INC-2019553035

PATIENT

DRUGS (8)
  1. FLUDARABINE PHOSPHATE. [Suspect]
     Active Substance: FLUDARABINE PHOSPHATE
     Indication: BONE MARROW CONDITIONING REGIMEN
     Dosage: 30 MG/M2, CYCLIC (ON DAYS -5 TO -1)
  2. IOBENGUANE (131 I) [Suspect]
     Active Substance: IOBENGUANE I-131
     Indication: FLUID REPLACEMENT
  3. POTASSIUM IODIDE. [Suspect]
     Active Substance: POTASSIUM IODIDE
     Indication: FLUID REPLACEMENT
     Dosage: UNK UNK, SINGLE
  4. PROLEUKIN [Suspect]
     Active Substance: ALDESLEUKIN
     Indication: NATURAL KILLER CELL ACTIVITY ABNORMAL
     Dosage: 1 X 10^6 IU/M2/DAY, ON DAYS 2, 4, 6, 9, 11, 13, 16, 18, AND 20
     Route: 058
  5. IOBENGUANE (131 I) [Suspect]
     Active Substance: IOBENGUANE I-131
     Indication: PROPHYLAXIS
     Dosage: 18 MCI, SINGLE
     Route: 042
  6. POTASSIUM IODIDE. [Suspect]
     Active Substance: POTASSIUM IODIDE
     Indication: PROPHYLAXIS
  7. CYCLOPHOSPHAMIDE. [Suspect]
     Active Substance: CYCLOPHOSPHAMIDE
     Indication: BONE MARROW CONDITIONING REGIMEN
     Dosage: 60 MG/KG, CYCLIC (ON DAY -7 AND -6)
  8. THYMOGLOBULIN [Suspect]
     Active Substance: LAPINE T-LYMPHOCYTE IMMUNE GLOBULIN
     Indication: BONE MARROW CONDITIONING REGIMEN
     Dosage: 2.5 MG/KG, CYCLIC (ON DAYS -4 TO -1)

REACTIONS (1)
  - Pneumocystis jirovecii pneumonia [Fatal]
